FAERS Safety Report 7079206-1 (Version None)
Quarter: 2010Q4

REPORT INFORMATION
  Report Type: 
  Country: None (occurrence: None)
  Receive Date: 20101102
  Receipt Date: 20101025
  Transmission Date: 20110411
  Serious: Yes (Death)
  Sender: FDA-Public Use
  Company Number: B0682297A

PATIENT
  Age: 65 Year
  Sex: Male

DRUGS (1)
  1. ARIXTRA [Suspect]
     Indication: PROPHYLAXIS
     Route: 065
     Dates: start: 20101018, end: 20101021

REACTIONS (1)
  - PULMONARY EMBOLISM [None]
